FAERS Safety Report 14784453 (Version 2)
Quarter: 2018Q2

REPORT INFORMATION
  Report Type: Spontaneous
  Country: TH (occurrence: TH)
  Receive Date: 20180420
  Receipt Date: 20180420
  Transmission Date: 20180711
  Serious: Yes (Hospitalization, Other)
  Sender: FDA-Public Use
  Company Number: TH-SA-2017SA152220

PATIENT
  Age: 46 Year
  Sex: Male

DRUGS (1)
  1. THYMOGLOBULINE [Suspect]
     Active Substance: LAPINE T-LYMPHOCYTE IMMUNE GLOBULIN
     Indication: APLASTIC ANAEMIA
     Route: 042
     Dates: start: 20150527, end: 20150531

REACTIONS (8)
  - Oropharyngeal pain [Unknown]
  - Febrile neutropenia [Recovered/Resolved]
  - Bacterial sepsis [Recovered/Resolved]
  - Haemoptysis [Unknown]
  - Abdominal pain [Unknown]
  - Sputum discoloured [Unknown]
  - Pyrexia [Recovered/Resolved]
  - Dyspepsia [Unknown]

NARRATIVE: CASE EVENT DATE: 20150530
